FAERS Safety Report 5386196-6 (Version None)
Quarter: 2007Q3

REPORT INFORMATION
  Report Type: 
  Country: None (occurrence: None)
  Receive Date: 20070710
  Receipt Date: 20070710
  Transmission Date: 20080115
  Serious: Yes (Life-Threatening, Hospitalization, Disabling)
  Sender: FDA-Public Use
  Company Number: None

PATIENT
  Age: 48 Year
  Sex: Male
  Weight: 97.5234 kg

DRUGS (1)
  1. CHANTIX [Suspect]
     Indication: SMOKING CESSATION THERAPY
     Dosage: .5 MG FOR 3 DAYS AND THEN 1 MG 2X''S A DAY PO
     Route: 048
     Dates: start: 20070602, end: 20070613

REACTIONS (3)
  - AMNESIA [None]
  - ASPHYXIA [None]
  - SUICIDE ATTEMPT [None]
